FAERS Safety Report 20181451 (Version 5)
Quarter: 2025Q3

REPORT INFORMATION
  Report Type: Spontaneous
  Country: US (occurrence: US)
  Receive Date: 20211214
  Receipt Date: 20250804
  Transmission Date: 20251021
  Serious: Yes (Other)
  Sender: PFIZER
  Company Number: US-PFIZER INC-202101223728

PATIENT
  Age: 73 Year
  Sex: Male
  Weight: 79.093 kg

DRUGS (4)
  1. XELJANZ [Suspect]
     Active Substance: TOFACITINIB CITRATE
     Indication: Colitis ulcerative
     Dosage: 10 MG, 2X/DAY (TWICE DAILY)
     Route: 048
     Dates: start: 20210807
  2. XELJANZ [Suspect]
     Active Substance: TOFACITINIB CITRATE
     Dosage: 5 MG, 2X/DAY
     Route: 048
     Dates: start: 202108
  3. XELJANZ [Suspect]
     Active Substance: TOFACITINIB CITRATE
     Dosage: 5 MG, 2X/DAY (STRENGTH: 5 MG)
     Route: 048
     Dates: start: 202108
  4. XELJANZ [Suspect]
     Active Substance: TOFACITINIB CITRATE
     Dosage: 5 MG, 2X/DAY
     Route: 048
     Dates: start: 202108

REACTIONS (10)
  - Spinal operation [Unknown]
  - Hip fracture [Unknown]
  - Upper-airway cough syndrome [Unknown]
  - Condition aggravated [Unknown]
  - Flatulence [Unknown]
  - Faeces hard [Unknown]
  - Nasal congestion [Unknown]
  - Rash [Unknown]
  - Rash macular [Unknown]
  - Fall [Unknown]

NARRATIVE: CASE EVENT DATE: 20210801
